FAERS Safety Report 6882895-5 (Version None)
Quarter: 2010Q3

REPORT INFORMATION
  Report Type: 
  Country: None (occurrence: None)
  Receive Date: 20100727
  Receipt Date: 20100708
  Transmission Date: 20110219
  Serious: Yes (Other)
  Sender: FDA-Public Use
  Company Number: 2010PI000294

PATIENT
  Age: 51 Year
  Sex: Female

DRUGS (1)
  1. WARFARIN SODIUM [Suspect]

REACTIONS (1)
  - CONSTIPATION [None]
